FAERS Safety Report 25957628 (Version 1)
Quarter: 2025Q4

REPORT INFORMATION
  Report Type: Spontaneous
  Country: US (occurrence: US)
  Receive Date: 20251024
  Receipt Date: 20251024
  Transmission Date: 20260118
  Serious: Yes (Other)
  Sender: AMGEN
  Company Number: US-AMGEN-USASP2025208865

PATIENT

DRUGS (3)
  1. ADALIMUMAB [Suspect]
     Active Substance: ADALIMUMAB
     Indication: Inflammatory bowel disease
     Dosage: UNK
     Route: 065
  2. INFLIXIMAB [Suspect]
     Active Substance: INFLIXIMAB
     Indication: Inflammatory bowel disease
     Dosage: UNK
     Route: 065
  3. USTEKINUMAB [Suspect]
     Active Substance: USTEKINUMAB
     Indication: Inflammatory bowel disease
     Dosage: UNK
     Route: 065

REACTIONS (12)
  - Acute febrile neutrophilic dermatosis [Unknown]
  - Acquired epidermolysis bullosa [Unknown]
  - Pyoderma [Unknown]
  - Cutaneous vasculitis [Unknown]
  - Hidradenitis [Unknown]
  - Skin mass [Unknown]
  - Vitiligo [Unknown]
  - Erythema nodosum [Unknown]
  - Aphthous ulcer [Unknown]
  - Psoriasis [Unknown]
  - Pyostomatitis vegetans [Unknown]
  - Herpes zoster [Unknown]
